FAERS Safety Report 20608098 (Version 1)
Quarter: 2022Q1

REPORT INFORMATION
  Report Type: Spontaneous
  Country: US (occurrence: None)
  Receive Date: 20220317
  Receipt Date: 20220317
  Transmission Date: 20220424
  Serious: Yes (Hospitalization)
  Sender: FDA-Public Use
  Company Number: None

PATIENT
  Sex: Female

DRUGS (2)
  1. DIPHENHYDRAMINE [Suspect]
     Active Substance: DIPHENHYDRAMINE
     Indication: Hepatobiliary cancer
     Dosage: 50MG DAY 1 AND 8 PER 21 DAY?
     Route: 042
     Dates: start: 20220217
  2. FOSAPREPITANT DIMEGLUMINE [Suspect]
     Active Substance: FOSAPREPITANT DIMEGLUMINE
     Indication: Hepatobiliary cancer
     Dosage: 150MG  DAY 1,8 PER 21 DAY ?
     Route: 042
     Dates: start: 20220217

REACTIONS (1)
  - Hip fracture [None]
